FAERS Safety Report 8294651-4 (Version None)
Quarter: 2012Q2

REPORT INFORMATION
  Report Type: 
  Country: None (occurrence: None)
  Receive Date: 20120418
  Receipt Date: 20120409
  Transmission Date: 20120825
  Serious: Yes (Hospitalization)
  Sender: FDA-Public Use
  Company Number: ES-ASTRAZENECA-2012SE23394

PATIENT
  Age: 65 Year
  Sex: Female

DRUGS (5)
  1. CRESTOR [Suspect]
     Indication: ISCHAEMIC CARDIOMYOPATHY
     Route: 048
     Dates: start: 20100921, end: 20101001
  2. TELMISARTAN [Concomitant]
     Route: 048
     Dates: start: 20100624
  3. ASPIRIN [Concomitant]
     Route: 048
     Dates: start: 20100803
  4. SERTRALINE HYDROCHLORIDE [Concomitant]
     Route: 048
     Dates: start: 20100827
  5. BISOPROLOL FUMARATE [Concomitant]
     Route: 048
     Dates: start: 20100624

REACTIONS (1)
  - HEPATITIS TOXIC [None]
